FAERS Safety Report 24933042 (Version 1)
Quarter: 2025Q1

REPORT INFORMATION
  Report Type: Spontaneous
  Country: PL (occurrence: PL)
  Receive Date: 20250206
  Receipt Date: 20250206
  Transmission Date: 20250409
  Serious: Yes (Hospitalization, Other)
  Sender: Haleon PLC
  Company Number: None

PATIENT
  Age: 38 Year
  Sex: Female
  Weight: 36.5 kg

DRUGS (3)
  1. APAP [Suspect]
     Active Substance: ACETAMINOPHEN
     Indication: Product used for unknown indication
  2. DICLOFENAC SODIUM\OMEPRAZOLE [Suspect]
     Active Substance: DICLOFENAC SODIUM\OMEPRAZOLE
     Indication: Spinal pain
  3. IBUPROFEN [Suspect]
     Active Substance: IBUPROFEN
     Indication: Product used for unknown indication

REACTIONS (6)
  - Gastrointestinal haemorrhage [Recovering/Resolving]
  - Gamma-glutamyltransferase abnormal [Recovering/Resolving]
  - Tumour marker increased [Recovering/Resolving]
  - Aspartate aminotransferase abnormal [Recovering/Resolving]
  - Alanine aminotransferase abnormal [Recovering/Resolving]
  - Cachexia [Recovering/Resolving]

NARRATIVE: CASE EVENT DATE: 20210817
